FAERS Safety Report 5243166-6 (Version None)
Quarter: 2007Q1

REPORT INFORMATION
  Report Type: 
  Country: None (occurrence: None)
  Receive Date: 20070215
  Receipt Date: 20070201
  Transmission Date: 20070707
  Serious: No
  Sender: FDA-Public Use
  Company Number: B0407440A

PATIENT
  Age: 36 Year
  Sex: Male

DRUGS (2)
  1. EPZICOM [Suspect]
     Indication: HIV INFECTION
     Dosage: 1 TABLET PER DAY ORAL
     Route: 048
     Dates: start: 20051001, end: 20050101
  2. EFAVIRENZ [Concomitant]

REACTIONS (3)
  - DRUG HYPERSENSITIVITY [None]
  - LYMPHADENOPATHY [None]
  - MYALGIA [None]
